FAERS Safety Report 21403076 (Version 1)
Quarter: 2022Q4

REPORT INFORMATION
  Report Type: Report from Study
  Country: BR (occurrence: None)
  Receive Date: 20221003
  Receipt Date: 20221003
  Transmission Date: 20230113
  Serious: Yes (Hospitalization, Other)
  Sender: FDA-Public Use
  Company Number: 2022A332816

PATIENT
  Sex: Male
  Weight: 10.4 kg

DRUGS (6)
  1. SYNAGIS [Suspect]
     Active Substance: PALIVIZUMAB
     Indication: Diaphragmatic hernia
     Dosage: ONE DOSE EVERY FIVE MONTHS
     Route: 030
     Dates: start: 202004, end: 202207
  2. SYMBICORT [Suspect]
     Active Substance: BUDESONIDE\FORMOTEROL FUMARATE DIHYDRATE
     Route: 055
  3. BECLOMETHASONE DIPROPIONATE [Concomitant]
     Active Substance: BECLOMETHASONE DIPROPIONATE
     Dosage: 2 JETS EVERY 12 HOURS
     Route: 065
  4. TAMIFLU [Concomitant]
     Active Substance: OSELTAMIVIR PHOSPHATE
     Route: 065
     Dates: start: 20220922
  5. VITAMINS [Concomitant]
     Active Substance: VITAMINS
     Indication: Combined immunodeficiency
     Dosage: 10 DROPS
     Route: 065
     Dates: start: 20220921
  6. AMOXICILLIN\CLAVULANATE POTASSIUM [Concomitant]
     Active Substance: AMOXICILLIN\CLAVULANATE POTASSIUM
     Indication: Severe acute respiratory syndrome
     Route: 065
     Dates: start: 20220922

REACTIONS (3)
  - Respiratory disorder [Recovering/Resolving]
  - Immune system disorder [Recovering/Resolving]
  - Off label use [Unknown]
